FAERS Safety Report 9355979 (Version 1)
Quarter: 2013Q2

REPORT INFORMATION
  Report Type: Spontaneous
  Country: CA (occurrence: CA)
  Receive Date: 20130619
  Receipt Date: 20130619
  Transmission Date: 20140414
  Serious: Yes (Other)
  Sender: FDA-Public Use
  Company Number: CA-BAYER-2013-072228

PATIENT
  Age: 34 Year
  Sex: Female

DRUGS (1)
  1. YASMIN 28 [Suspect]
     Dosage: UNK
     Route: 048
     Dates: start: 2005, end: 201212

REACTIONS (3)
  - Poor peripheral circulation [None]
  - Raynaud^s phenomenon [None]
  - Oedema peripheral [None]
